FAERS Safety Report 13381550 (Version 2)
Quarter: 2017Q2

REPORT INFORMATION
  Report Type: Spontaneous
  Country: US (occurrence: US)
  Receive Date: 20170329
  Receipt Date: 20170411
  Transmission Date: 20170830
  Serious: Yes (Other)
  Sender: FDA-Public Use
  Company Number: US-ALLERGAN-1708970US

PATIENT
  Sex: Female

DRUGS (1)
  1. NAMZARIC [Suspect]
     Active Substance: DONEPEZIL HYDROCHLORIDE\MEMANTINE HYDROCHLORIDE
     Indication: PRODUCT USED FOR UNKNOWN INDICATION
     Dosage: UNK
     Dates: end: 20170306

REACTIONS (7)
  - Agitation [Unknown]
  - Disorientation [Unknown]
  - Confusional state [Not Recovered/Not Resolved]
  - Aggression [Unknown]
  - Abnormal behaviour [Unknown]
  - Dementia [Unknown]
  - Hallucination [Unknown]
